FAERS Safety Report 9063866 (Version 1)
Quarter: 2013Q1

REPORT INFORMATION
  Report Type: Spontaneous
  Country: GB (occurrence: GB)
  Receive Date: 20130213
  Receipt Date: 20130213
  Transmission Date: 20140127
  Serious: Yes (Other)
  Sender: FDA-Public Use
  Company Number: GB-ROCHE-1185807

PATIENT
  Age: 79 None
  Sex: Female
  Weight: 76 kg

DRUGS (6)
  1. MABTHERA [Suspect]
     Indication: RHEUMATOID ARTHRITIS
     Route: 042
     Dates: start: 20130124
  2. MABTHERA [Suspect]
     Route: 065
     Dates: start: 20130202
  3. CO-CODAMOL [Concomitant]
     Indication: PAIN
     Dosage: 30/500 MG
     Route: 048
  4. RANITIDINE [Concomitant]
     Route: 048
  5. PREDNISOLONE [Concomitant]
     Indication: RHEUMATOID ARTHRITIS
     Route: 048
     Dates: start: 201211
  6. CALCICHEW D3 [Concomitant]
     Indication: OSTEOPOROSIS
     Route: 048

REACTIONS (2)
  - Palpitations [Unknown]
  - Flushing [Recovered/Resolved]
